FAERS Safety Report 19636501 (Version 1)
Quarter: 2021Q3

REPORT INFORMATION
  Report Type: Spontaneous
  Country: US (occurrence: US)
  Receive Date: 20210730
  Receipt Date: 20210730
  Transmission Date: 20211014
  Serious: Yes (Life-Threatening, Hospitalization)
  Sender: FDA-Public Use
  Company Number: None

PATIENT
  Age: 77 Year
  Sex: Female
  Weight: 107 kg

DRUGS (2)
  1. ALTEPLASE. [Concomitant]
     Active Substance: ALTEPLASE
     Dates: start: 20210726, end: 20210726
  2. ALTEPLASE. [Suspect]
     Active Substance: ALTEPLASE

REACTIONS (2)
  - Haemorrhage [None]
  - Cerebrovascular accident [None]

NARRATIVE: CASE EVENT DATE: 20210726
